FAERS Safety Report 4623007-8 (Version None)
Quarter: 2005Q1

REPORT INFORMATION
  Report Type: 
  Country: None (occurrence: None)
  Receive Date: 20050329
  Receipt Date: 20050314
  Transmission Date: 20050727
  Serious: Yes (Hospitalization)
  Sender: FDA-Public Use
  Company Number: 2005-BP-04226YA

PATIENT
  Age: 81 Year
  Sex: Male

DRUGS (6)
  1. TAMSULOSIN HCL [Suspect]
     Dosage: 0.4 MG PO
     Route: 048
     Dates: start: 20040923, end: 20041022
  2. CELEBREX [Suspect]
     Indication: PAIN
     Dosage: PO
     Route: 048
     Dates: start: 20041016, end: 20041022
  3. XATRAL (ALFUZOSIN) (NR) [Suspect]
     Dosage: PO
     Route: 048
     Dates: start: 20041028, end: 20041104
  4. FUROSEMIDE [Concomitant]
  5. ALLOPURINOL (NR) [Concomitant]
  6. ENALAPRIL W/HYDROCHLOROTHIAZIDE (ACESISTEM) (NR) [Concomitant]

REACTIONS (11)
  - AFFECT LABILITY [None]
  - ASPARTATE AMINOTRANSFERASE INCREASED [None]
  - CATHETER SITE PHLEBITIS [None]
  - CONFUSIONAL STATE [None]
  - DRUG HYPERSENSITIVITY [None]
  - ECZEMA [None]
  - EOSINOPHIL COUNT INCREASED [None]
  - GAMMA-GLUTAMYLTRANSFERASE INCREASED [None]
  - PHLEBITIS SUPERFICIAL [None]
  - RASH MACULO-PAPULAR [None]
  - STAPHYLOCOCCAL INFECTION [None]
